FAERS Safety Report 13693216 (Version 1)
Quarter: 2017Q2

REPORT INFORMATION
  Report Type: Spontaneous
  Country: US (occurrence: US)
  Receive Date: 20170627
  Receipt Date: 20170627
  Transmission Date: 20170830
  Serious: Yes (Hospitalization)
  Sender: FDA-Public Use
  Company Number: PHEH2017US019335

PATIENT
  Sex: Female
  Weight: 91.44 kg

DRUGS (1)
  1. KISQALI [Suspect]
     Active Substance: RIBOCICLIB
     Indication: BREAST CANCER FEMALE
     Dosage: 400 MG, QD
     Route: 048
     Dates: start: 20170602

REACTIONS (3)
  - Fall [Unknown]
  - Pyrexia [Unknown]
  - Dizziness [Unknown]
